FAERS Safety Report 7884745-7 (Version None)
Quarter: 2011Q4

REPORT INFORMATION
  Report Type: 
  Country: None (occurrence: None)
  Receive Date: 20111102
  Receipt Date: 20111028
  Transmission Date: 20120403
  Serious: Yes (Other)
  Sender: FDA-Public Use
  Company Number: US-AMGEN-USASP2011046730

PATIENT
  Age: 21 Year
  Sex: Female

DRUGS (1)
  1. ENBREL [Suspect]
     Indication: PSORIASIS
     Dosage: 50 MG, QWK
     Dates: start: 20060101, end: 20091201

REACTIONS (4)
  - ANAEMIA [None]
  - CEPHALO-PELVIC DISPROPORTION [None]
  - DIZZINESS [None]
  - PSORIASIS [None]
